FAERS Safety Report 6699527-1 (Version None)
Quarter: 2010Q2

REPORT INFORMATION
  Report Type: 
  Country: None (occurrence: None)
  Receive Date: 20100427
  Receipt Date: 20100427
  Transmission Date: 20101027
  Serious: Yes (Disabling)
  Sender: FDA-Public Use
  Company Number: None

PATIENT
  Age: 56 Year
  Sex: Female

DRUGS (8)
  1. ABILIFY [Suspect]
     Dosage: 10MG DAILY
     Dates: start: 20091223
  2. L-THYROXINE(SYNTHROID) [Concomitant]
  3. CLONAZEPAM [Concomitant]
  4. MIRTAZAPINE [Concomitant]
  5. SEROQUEL [Concomitant]
  6. LEXAPRO [Concomitant]
  7. LAMOTRIGINE [Concomitant]
  8. ZETIA [Concomitant]

REACTIONS (7)
  - FACIAL PAIN [None]
  - HEADACHE [None]
  - INSOMNIA [None]
  - ORAL PAIN [None]
  - PAIN IN JAW [None]
  - TREMOR [None]
  - TRISMUS [None]
